FAERS Safety Report 17414519 (Version 2)
Quarter: 2020Q2

REPORT INFORMATION
  Report Type: Spontaneous
  Country: US (occurrence: US)
  Receive Date: 20200213
  Receipt Date: 20200402
  Transmission Date: 20200713
  Serious: Yes (Hospitalization, Other)
  Sender: FDA-Public Use
  Company Number: US-PFIZER INC-2020049723

PATIENT
  Age: 69 Year
  Sex: Male
  Weight: 97.52 kg

DRUGS (5)
  1. ATORVASTATIN [Concomitant]
     Active Substance: ATORVASTATIN
     Dosage: UNK
  2. SUTENT [Suspect]
     Active Substance: SUNITINIB MALATE
     Indication: POSTOPERATIVE CARE
     Dosage: 50 MG, CYCLIC ((50MG CAPSULE TAKEN BY MOUTH ONCE DAILY FOR 2 WEEKS, THEN OFF FOR 1 WEEK)
     Route: 048
     Dates: start: 20190401, end: 20200129
  3. AMLODIPINE [Concomitant]
     Active Substance: AMLODIPINE BESYLATE
     Indication: BLOOD PRESSURE ABNORMAL
     Dosage: 10 MG, 1X/DAY
     Route: 048
     Dates: end: 20200302
  4. SUTENT [Suspect]
     Active Substance: SUNITINIB MALATE
     Indication: RENAL CANCER STAGE III
     Dosage: 50 MG, CYCLIC (DAILY FOR 2 WEEKS, THEN 1 WEEK OFF, REPEAT EVERY 3 WEEKS)
     Route: 048
     Dates: start: 20190401, end: 20200130
  5. LEVOTHYROXINE. [Concomitant]
     Active Substance: LEVOTHYROXINE
     Dosage: UNK
     Dates: start: 20191101

REACTIONS (17)
  - Dehydration [Recovered/Resolved]
  - Product dose omission [Unknown]
  - Pruritus [Unknown]
  - Diarrhoea [Recovered/Resolved]
  - Cognitive disorder [Unknown]
  - Dyspepsia [Unknown]
  - Gastroenteritis viral [Unknown]
  - Nausea [Unknown]
  - Heart rate decreased [Recovered/Resolved]
  - Vomiting [Recovered/Resolved]
  - Taste disorder [Not Recovered/Not Resolved]
  - Fatigue [Unknown]
  - Dry skin [Unknown]
  - Eczema [Unknown]
  - Abdominal pain upper [Unknown]
  - Insomnia [Unknown]
  - Renal impairment [Unknown]

NARRATIVE: CASE EVENT DATE: 20190415
